FAERS Safety Report 9373517 (Version 1)
Quarter: 2013Q2

REPORT INFORMATION
  Report Type: Report from Study
  Country: BR (occurrence: BR)
  Receive Date: 20130627
  Receipt Date: 20130627
  Transmission Date: 20140414
  Serious: Yes (Death, Other)
  Sender: FDA-Public Use
  Company Number: PHHY2013BR008769

PATIENT
  Age: 84 Year
  Sex: Male
  Weight: 60 kg

DRUGS (6)
  1. EXJADE [Suspect]
     Indication: SICKLE CELL ANAEMIA
     Dosage: 250 MG, (3 TAB DAILY)
     Route: 048
     Dates: start: 1996
  2. EXJADE [Suspect]
     Dosage: 500 MG
     Route: 048
  3. EXJADE [Suspect]
     Dosage: 250 MG
     Route: 048
  4. CALCITRAN [Concomitant]
  5. LENALIDOMIDE [Concomitant]
     Dosage: UNK
  6. AAS [Concomitant]
     Indication: CARDIAC DISORDER
     Dosage: 1 DF, QD
     Route: 048
     Dates: start: 1996

REACTIONS (7)
  - Cardiac arrest [Fatal]
  - Respiratory arrest [Fatal]
  - Memory impairment [Unknown]
  - Depression [Not Recovered/Not Resolved]
  - Feeding disorder [Not Recovered/Not Resolved]
  - Weight decreased [Not Recovered/Not Resolved]
  - Wrong technique in drug usage process [Unknown]
